FAERS Safety Report 8086902-6 (Version None)
Quarter: 2012Q1

REPORT INFORMATION
  Report Type: 
  Country: None (occurrence: None)
  Receive Date: 20120128
  Receipt Date: 20110615
  Transmission Date: 20120608
  Serious: No
  Sender: FDA-Public Use
  Company Number: US-ABBOTT-11P-163-0732542-00

PATIENT
  Age: 45 Year
  Sex: Female

DRUGS (3)
  1. LIALDA [Concomitant]
     Indication: PRODUCT USED FOR UNKNOWN INDICATION
  2. HUMIRA [Suspect]
     Indication: CROHN'S DISEASE
     Dates: start: 20110218, end: 20110501
  3. HUMIRA [Suspect]
     Dates: start: 20110501

REACTIONS (6)
  - INJECTION SITE INFLAMMATION [None]
  - PRURITUS [None]
  - HAEMATOCHEZIA [None]
  - DEFAECATION URGENCY [None]
  - INJECTION SITE ERYTHEMA [None]
  - CONTUSION [None]
